FAERS Safety Report 7277635-4 (Version None)
Quarter: 2011Q1

REPORT INFORMATION
  Report Type: 
  Country: None (occurrence: None)
  Receive Date: 20110207
  Receipt Date: 20110201
  Transmission Date: 20110831
  Serious: Yes (Death, Other)
  Sender: FDA-Public Use
  Company Number: JP-ASTELLAS-2011JP000786

PATIENT
  Age: 53 Year
  Sex: Female

DRUGS (5)
  1. FLUDARA [Concomitant]
     Dosage: 30 MG/M2, UNKNOWN/D
     Route: 042
  2. PROGRAF [Suspect]
     Indication: PROPHYLAXIS AGAINST GRAFT VERSUS HOST DISEASE
     Route: 065
  3. METHOTREXATE [Concomitant]
     Indication: PROPHYLAXIS AGAINST GRAFT VERSUS HOST DISEASE
     Route: 065
  4. CYCLOPHOSPHAMIDE [Concomitant]
     Dosage: 2000 MG/M2, UNKNOWN/D
     Route: 042
  5. CYCLOPHOSPHAMIDE [Concomitant]
     Dosage: 120 MG/KG, UNKNOWN/D
     Route: 065

REACTIONS (2)
  - HISTIOCYTOSIS HAEMATOPHAGIC [None]
  - STAPHYLOCOCCAL SEPSIS [None]
